FAERS Safety Report 24906319 (Version 2)
Quarter: 2025Q1

REPORT INFORMATION
  Report Type: Spontaneous
  Country: US (occurrence: US)
  Receive Date: 20250130
  Receipt Date: 20250203
  Transmission Date: 20250409
  Serious: No
  Sender: PFIZER
  Company Number: US-PFIZER INC-202500018228

PATIENT
  Age: 68 Year
  Sex: Male
  Weight: 77.098 kg

DRUGS (1)
  1. TIKOSYN [Suspect]
     Active Substance: DOFETILIDE
     Indication: Atrial fibrillation
     Dosage: 250 MICROGRAMS AND IT^S TWICE A DAY, ONCE IN MORNING, ONCE AT NIGHT

REACTIONS (1)
  - Therapeutic product effect incomplete [Unknown]
